FAERS Safety Report 4534834-X (Version None)
Quarter: 2004Q4

REPORT INFORMATION
  Report Type: 
  Country: None (occurrence: None)
  Receive Date: 20041222
  Receipt Date: 20040416
  Transmission Date: 20050328
  Serious: No
  Sender: FDA-Public Use
  Company Number: US-BRISTOL-MYERS SQUIBB COMPANY-12562690

PATIENT
  Age: 72 Year
  Sex: Male
  Weight: 76 kg

DRUGS (3)
  1. PRAVACHOL [Suspect]
     Indication: HYPERTENSION
  2. PRAVACHOL [Suspect]
     Indication: CORONARY ARTERY SURGERY
  3. NORVASC [Concomitant]

REACTIONS (1)
  - DIARRHOEA [None]
